FAERS Safety Report 6689315-4 (Version None)
Quarter: 2010Q2

REPORT INFORMATION
  Report Type: 
  Country: None (occurrence: None)
  Receive Date: 20100420
  Receipt Date: 20100407
  Transmission Date: 20101027
  Serious: Yes (Hospitalization)
  Sender: FDA-Public Use
  Company Number: HR-ELI_LILLY_AND_COMPANY-HR201002006770

PATIENT
  Age: 30 Year
  Sex: Female

DRUGS (5)
  1. ZYPREXA [Suspect]
     Indication: SCHIZOPHRENIA
     Dosage: 10 MG, DAILY (1/D)
     Route: 048
     Dates: start: 20070101
  2. ZYPREXA [Suspect]
     Dosage: 20 MG, UNKNOWN
     Route: 048
  3. ZYPREXA [Suspect]
     Dosage: 20 MG, 2/D
     Route: 048
     Dates: start: 20091224, end: 20100208
  4. HALOPERIDOL [Concomitant]
     Dosage: 15 MG, UNK
  5. AKINETON /00079501/ [Concomitant]
     Dosage: 4 MG, UNK

REACTIONS (3)
  - BRADYCARDIA [None]
  - HOSPITALISATION [None]
  - OVERDOSE [None]
